FAERS Safety Report 7248448-4 (Version None)
Quarter: 2011Q1

REPORT INFORMATION
  Report Type: 
  Country: None (occurrence: None)
  Receive Date: 20110127
  Receipt Date: 20110120
  Transmission Date: 20110831
  Serious: Yes (Hospitalization)
  Sender: FDA-Public Use
  Company Number: US-ELI_LILLY_AND_COMPANY-US201011005282

PATIENT
  Age: 68 Year
  Sex: Male
  Weight: 94.785 kg

DRUGS (8)
  1. LASIX [Concomitant]
  2. LISINOPRIL [Concomitant]
  3. XANAX [Concomitant]
  4. LANTUS [Concomitant]
  5. LOPRESSOR [Concomitant]
  6. HUMALOG [Suspect]
     Indication: DIABETES MELLITUS
     Dosage: UNK, AS NEEDED
     Dates: start: 20081101
  7. ASA [Concomitant]
  8. ZOCOR [Concomitant]

REACTIONS (4)
  - DIABETES MELLITUS INADEQUATE CONTROL [None]
  - PROSTATITIS [None]
  - SEPTIC SHOCK [None]
  - DEHYDRATION [None]
